FAERS Safety Report 9107921 (Version 1)
Quarter: 2013Q1

REPORT INFORMATION
  Report Type: Spontaneous
  Country: US (occurrence: US)
  Receive Date: 20130221
  Receipt Date: 20130221
  Transmission Date: 20140127
  Serious: No
  Sender: FDA-Public Use
  Company Number: US-009507513-1301USA009058

PATIENT
  Age: 21 Year
  Sex: Female
  Weight: 58.96 kg

DRUGS (1)
  1. IMPLANON [Suspect]
     Indication: CONTRACEPTION
     Dosage: UNK 3 YEAR IMPLANT IN LEFT HAND
     Route: 059
     Dates: start: 20121113

REACTIONS (4)
  - Menstruation irregular [Unknown]
  - Menorrhagia [Unknown]
  - Acne [Unknown]
  - Mood swings [Unknown]
